FAERS Safety Report 13963342 (Version 1)
Quarter: 2017Q3

REPORT INFORMATION
  Report Type: Spontaneous
  Country: US (occurrence: US)
  Receive Date: 20170913
  Receipt Date: 20170913
  Transmission Date: 20171128
  Serious: No
  Sender: FDA-Public Use
  Company Number: US-GLAXOSMITHKLINE-US2017GSK141423

PATIENT
  Sex: Male

DRUGS (2)
  1. LAMOTRIGINE. [Suspect]
     Active Substance: LAMOTRIGINE
     Indication: ABNORMAL BEHAVIOUR
     Dosage: 25 MG, U
     Dates: start: 20170830
  2. LAMOTRIGINE. [Suspect]
     Active Substance: LAMOTRIGINE
     Indication: CRANIOCEREBRAL INJURY

REACTIONS (3)
  - Product use in unapproved indication [Unknown]
  - Adverse drug reaction [Unknown]
  - Epistaxis [Unknown]

NARRATIVE: CASE EVENT DATE: 201709
